FAERS Safety Report 10183848 (Version 5)
Quarter: 2014Q3

REPORT INFORMATION
  Report Type: Spontaneous
  Country: US (occurrence: US)
  Receive Date: 20140520
  Receipt Date: 20140930
  Transmission Date: 20150326
  Serious: Yes (Other)
  Sender: FDA-Public Use
  Company Number: US-BAYER-2014-072160

PATIENT
  Age: 22 Year
  Sex: Female

DRUGS (1)
  1. MIRENA [Suspect]
     Active Substance: LEVONORGESTREL
     Indication: CONTRACEPTION
     Dosage: 20 MCG/24HR, CONT
     Route: 015
     Dates: start: 20140417, end: 20140516

REACTIONS (15)
  - Abdominal pain lower [Recovered/Resolved]
  - Activities of daily living impaired [Recovered/Resolved]
  - Procedural pain [Recovered/Resolved]
  - Acne [None]
  - Frustration [Recovered/Resolved]
  - Depression suicidal [Recovered/Resolved]
  - Genital haemorrhage [Recovered/Resolved]
  - Fatigue [Recovered/Resolved]
  - Menstruation delayed [None]
  - Weight increased [None]
  - Amenorrhoea [None]
  - Alopecia [Recovered/Resolved]
  - Post procedural haemorrhage [None]
  - Crying [Recovered/Resolved]
  - Mobility decreased [Recovered/Resolved]

NARRATIVE: CASE EVENT DATE: 2014
